FAERS Safety Report 8932803 (Version 3)
Quarter: 2013Q1

REPORT INFORMATION
  Report Type: Spontaneous
  Country: US (occurrence: US)
  Receive Date: 20121129
  Receipt Date: 20130125
  Transmission Date: 20140127
  Serious: Yes (Hospitalization)
  Sender: FDA-Public Use
  Company Number: US-ELI_LILLY_AND_COMPANY-US201211006799

PATIENT
  Sex: Female

DRUGS (2)
  1. HUMULIN 30% REGULAR, 70% NPH [Suspect]
     Dosage: UNK UNK, UNKNOWN
  2. METFORMIN [Concomitant]

REACTIONS (7)
  - Constipation [Recovered/Resolved]
  - Dehydration [Recovered/Resolved]
  - Eye disorder [Recovered/Resolved]
  - Glycosylated haemoglobin increased [Unknown]
  - Diabetic neuropathy [Unknown]
  - Faecaloma [Unknown]
  - Urinary tract infection [Unknown]
